FAERS Safety Report 23675009 (Version 1)
Quarter: 2024Q1

REPORT INFORMATION
  Report Type: Spontaneous
  Country: DE (occurrence: DE)
  Receive Date: 20240326
  Receipt Date: 20240326
  Transmission Date: 20240410
  Serious: Yes (Hospitalization)
  Sender: FDA-Public Use
  Company Number: DE-BIOMARINAP-DE-2024-156669

PATIENT

DRUGS (3)
  1. PALYNZIQ [Suspect]
     Active Substance: PEGVALIASE-PQPZ
     Indication: Phenylketonuria
     Dosage: 20 MILLIGRAM, QD
     Route: 058
  2. PALYNZIQ [Suspect]
     Active Substance: PEGVALIASE-PQPZ
     Dosage: UNK
     Route: 058
     Dates: start: 20231012
  3. LORATADINE [Concomitant]
     Active Substance: LORATADINE
     Indication: Premedication
     Dosage: 20 MILLIGRAM, QD
     Route: 048

REACTIONS (6)
  - Cardiovascular disorder [Recovering/Resolving]
  - Nausea [Recovering/Resolving]
  - Dizziness [Recovered/Resolved]
  - Cold sweat [Recovered/Resolved]
  - Throat tightness [Recovered/Resolved]
  - Abdominal pain lower [Recovered/Resolved]

NARRATIVE: CASE EVENT DATE: 20240320
